FAERS Safety Report 8830221 (Version 5)
Quarter: 2013Q2

REPORT INFORMATION
  Report Type: Spontaneous
  Country: US (occurrence: None)
  Receive Date: 20121004
  Receipt Date: 20130506
  Transmission Date: 20140414
  Serious: Yes (Hospitalization, Other)
  Sender: FDA-Public Use
  Company Number: 2012-000999

PATIENT
  Age: 71 Year
  Sex: Female
  Weight: 123.8 kg

DRUGS (20)
  1. ACTONEL [Suspect]
     Indication: OSTEOPOROSIS
     Route: 048
     Dates: start: 20080415
  2. ACTONEL [Suspect]
     Indication: OSTEOPOROSIS
     Route: 048
     Dates: start: 200601, end: 200712
  3. FOSAMAX (ALENDRONATE SODIUM) [Suspect]
     Indication: OSTEOPOROSIS
     Route: 048
     Dates: start: 200009, end: 200012
  4. METFORMIN (METFORMIN) [Concomitant]
  5. LEVOTHYROXINE (LEVOTHYROXINE) [Concomitant]
  6. LOVASTATIN (LOVASTATIN) [Concomitant]
  7. NIZATIDINE (NIZATIDINE) [Concomitant]
  8. ATENOLOL (ATENOLOL) [Concomitant]
  9. NAPROXEN (NAPROXEN) [Concomitant]
  10. POTASSIUM CHLORIDE (POTASSIUM CHLORIDE) [Concomitant]
  11. FUROSEMIDE (FUROSEMIDE) [Concomitant]
  12. LIPITOR (ATORVASTATIN CALCIUM) [Concomitant]
  13. PROPOXYPHENE N/APAP (DEXTROPROPOXYPHENE NAPSILATE, PARACETAMOL) [Concomitant]
  14. HYDROCODONE W/APAP (HYDROCODONE, PARACETAMOL) [Concomitant]
  15. HYDROCHLOROTHIAZIDE (HYDROCHLOROTHIAZIDE) [Concomitant]
  16. CELEBREX (CELECOXIB) [Concomitant]
  17. CALCIUM (CALCIUM) [Concomitant]
  18. FIBERCON [Concomitant]
  19. BABY ASPIRIN (ACETYLSALICYLIC ACID) [Concomitant]
  20. EX-LAX /00142201/ (SENNA ALEXANDRINA) [Concomitant]

REACTIONS (14)
  - Femur fracture [None]
  - Stress fracture [None]
  - Femur fracture [None]
  - Pathological fracture [None]
  - Bone disorder [None]
  - Pain [None]
  - Low turnover osteopathy [None]
  - Multiple injuries [None]
  - Fall [None]
  - Fracture displacement [None]
  - Bone graft [None]
  - Muscular weakness [None]
  - Gait disturbance [None]
  - Fracture nonunion [None]
